FAERS Safety Report 5650369-5 (Version None)
Quarter: 2008Q1

REPORT INFORMATION
  Report Type: 
  Country: None (occurrence: None)
  Receive Date: 20080305
  Receipt Date: 20080227
  Transmission Date: 20080703
  Serious: Yes (Hospitalization)
  Sender: FDA-Public Use
  Company Number: US-BRISTOL-MYERS SQUIBB COMPANY-14032668

PATIENT
  Age: 49 Year
  Sex: Female
  Weight: 82 kg

DRUGS (8)
  1. IXEMPRA FOR INJ [Suspect]
     Indication: BREAST CANCER
     Route: 042
     Dates: start: 20071128, end: 20071128
  2. COUMADIN [Suspect]
  3. HYDROCODONE BITARTRATE [Concomitant]
  4. LORAZEPAM [Concomitant]
  5. TYLENOL (CAPLET) [Concomitant]
  6. PRILOSEC [Concomitant]
  7. VYTORIN [Concomitant]
  8. NAPROSYN [Concomitant]

REACTIONS (7)
  - ABSCESS [None]
  - BONE PAIN [None]
  - DIZZINESS [None]
  - PANCYTOPENIA [None]
  - PYREXIA [None]
  - SKIN NECROSIS [None]
  - STAPHYLOCOCCAL SEPSIS [None]
